FAERS Safety Report 18839494 (Version 1)
Quarter: 2021Q1

REPORT INFORMATION
  Report Type: Spontaneous
  Country: US (occurrence: US)
  Receive Date: 20210203
  Receipt Date: 20210203
  Transmission Date: 20210419
  Serious: Yes (Hospitalization)
  Sender: FDA-Public Use
  Company Number: US-ELI_LILLY_AND_COMPANY-US202101010347

PATIENT
  Sex: Male
  Weight: 9.07 kg

DRUGS (2)
  1. TRULICITY [Suspect]
     Active Substance: DULAGLUTIDE
     Indication: DIABETES MELLITUS
     Dosage: UNK, UNKNOWN
     Route: 065
  2. DUPIXENT [Concomitant]
     Active Substance: DUPILUMAB
     Indication: ECZEMA
     Dosage: UNK, UNKNOWN
     Route: 065

REACTIONS (11)
  - Pneumonia [Recovered/Resolved]
  - Overweight [Unknown]
  - Oropharyngeal discomfort [Recovered/Resolved]
  - Oxygen saturation decreased [Unknown]
  - Respiratory failure [Recovered/Resolved]
  - Restrictive pulmonary disease [Unknown]
  - Weight decreased [Unknown]
  - Pyrexia [Recovered/Resolved]
  - Pneumonia viral [Recovered/Resolved]
  - Eczema [Unknown]
  - Weight increased [Unknown]
